FAERS Safety Report 24398036 (Version 6)
Quarter: 2025Q2

REPORT INFORMATION
  Report Type: Spontaneous
  Country: US (occurrence: US)
  Receive Date: 20241004
  Receipt Date: 20250402
  Transmission Date: 20250716
  Serious: No
  Sender: PFIZER
  Company Number: US-PFIZER INC-202400262431

PATIENT
  Age: 13 Year
  Sex: Male
  Weight: 70.31 kg

DRUGS (1)
  1. GENOTROPIN [Suspect]
     Active Substance: SOMATROPIN
     Dosage: 3.4 MG, DAILY (6 DAYS/ WEEK)

REACTIONS (3)
  - Device use error [Unknown]
  - Device issue [Unknown]
  - Device material issue [Unknown]
